FAERS Safety Report 6162057-X (Version None)
Quarter: 2009Q2

REPORT INFORMATION
  Report Type: 
  Country: None (occurrence: None)
  Receive Date: 20090421
  Receipt Date: 20090416
  Transmission Date: 20091009
  Serious: Yes (Death)
  Sender: FDA-Public Use
  Company Number: JP-AVENTIS-200911121JP

PATIENT

DRUGS (3)
  1. DOCETAXEL [Suspect]
     Route: 041
  2. HYDROCORTISONE [Concomitant]
  3. ESTRAMUSTINE [Concomitant]

REACTIONS (1)
  - INTERSTITIAL LUNG DISEASE [None]
